FAERS Safety Report 4641259-5 (Version None)
Quarter: 2005Q2

REPORT INFORMATION
  Report Type: 
  Country: None (occurrence: None)
  Receive Date: 20050420
  Receipt Date: 20050420
  Transmission Date: 20051028
  Serious: Yes (Other)
  Sender: FDA-Public Use
  Company Number: None

PATIENT
  Age: 53 Year
  Sex: Female
  Weight: 72.5755 kg

DRUGS (1)
  1. DARVOCET-N 100 [Suspect]
     Indication: PSORIATIC ARTHROPATHY
     Dosage: N-100 Q 6 HOURS PRN    OVER A YEAR
     Dates: start: 20030101

REACTIONS (2)
  - PALPITATIONS [None]
  - URTICARIA [None]
